FAERS Safety Report 6168499-0 (Version None)
Quarter: 2009Q2

REPORT INFORMATION
  Report Type: 
  Country: None (occurrence: None)
  Receive Date: 20090427
  Receipt Date: 20090417
  Transmission Date: 20091009
  Serious: Yes (Hospitalization)
  Sender: FDA-Public Use
  Company Number: A0780395A

PATIENT
  Age: 83 Year
  Sex: Female
  Weight: 78.2 kg

DRUGS (13)
  1. AVANDIA [Suspect]
     Indication: DIABETES MELLITUS
     Dosage: 4MG TWICE PER DAY
     Route: 048
     Dates: start: 20050101, end: 20070801
  2. ACTOS [Concomitant]
  3. METFORMIN HCL [Concomitant]
  4. GLYBURIDE [Concomitant]
  5. LANTUS [Concomitant]
  6. GLUCOTROL [Concomitant]
  7. TOPROL-XL [Concomitant]
  8. HYDROCHLOROTHIAZIDE [Concomitant]
     Dates: start: 20040101, end: 20060101
  9. LIPITOR [Concomitant]
  10. LOVASTATIN [Concomitant]
  11. ZOCOR [Concomitant]
  12. PROTONIX [Concomitant]
  13. VERAPAMIL [Concomitant]

REACTIONS (1)
  - MYOCARDIAL INFARCTION [None]
